FAERS Safety Report 6432807-3 (Version None)
Quarter: 2009Q4

REPORT INFORMATION
  Report Type: 
  Country: None (occurrence: None)
  Receive Date: 20091109
  Receipt Date: 20091029
  Transmission Date: 20100525
  Serious: Yes (Hospitalization)
  Sender: FDA-Public Use
  Company Number: A0815465A

PATIENT
  Age: 62 Year
  Sex: Female

DRUGS (1)
  1. TYKERB [Suspect]
     Dosage: 1250MG UNKNOWN
     Route: 048
     Dates: start: 20080213, end: 20080701

REACTIONS (5)
  - COLITIS [None]
  - METASTASES TO MENINGES [None]
  - NEUROLOGICAL DECOMPENSATION [None]
  - PROCTITIS [None]
  - RECTAL HAEMORRHAGE [None]
